FAERS Safety Report 7766137-4 (Version None)
Quarter: 2011Q3

REPORT INFORMATION
  Report Type: 
  Country: None (occurrence: None)
  Receive Date: 20110921
  Receipt Date: 20110912
  Transmission Date: 20111222
  Serious: Yes (Other)
  Sender: FDA-Public Use
  Company Number: BR-ASTRAZENECA-2011SE54820

PATIENT
  Age: 60 Year
  Sex: Female
  Weight: 87 kg

DRUGS (5)
  1. CAPTOPRIL [Suspect]
     Indication: HYPERTENSION
     Route: 048
     Dates: end: 20100901
  2. CRESTOR [Suspect]
     Indication: DYSLIPIDAEMIA
     Route: 048
     Dates: start: 20090101, end: 20100901
  3. OMEPRAZOLE [Suspect]
     Indication: HIATUS HERNIA
     Route: 048
     Dates: start: 20070101
  4. SIMVASTATIN [Suspect]
     Indication: DYSLIPIDAEMIA
     Route: 048
     Dates: end: 20090101
  5. SYNTHROID [Concomitant]
     Indication: HYPOTHYROIDISM
     Route: 048
     Dates: start: 20070101

REACTIONS (2)
  - DYSLIPIDAEMIA [None]
  - BLOOD PRESSURE INCREASED [None]
